FAERS Safety Report 7277490-2 (Version None)
Quarter: 2011Q1

REPORT INFORMATION
  Report Type: 
  Country: None (occurrence: None)
  Receive Date: 20110207
  Receipt Date: 20110124
  Transmission Date: 20110831
  Serious: Yes (Hospitalization, Other)
  Sender: FDA-Public Use
  Company Number: US-ELI_LILLY_AND_COMPANY-US201010004963

PATIENT
  Sex: Female

DRUGS (13)
  1. LEVOTHYROXINE [Concomitant]
     Dosage: 50 UG, DAILY (1/D)
  2. PROVIGIL [Concomitant]
     Dosage: 200 MG, DAILY (1/D)
  3. VITAMIN D [Concomitant]
     Dosage: 2000 IU, DAILY (1/D)
  4. ZETIA [Concomitant]
     Dosage: 10 MG, DAILY (1/D)
  5. NABUMETONE [Concomitant]
     Dosage: 500 MG, 2/D
  6. CETIRIZINE HCL [Concomitant]
     Dosage: 10 MG, DAILY (1/D)
  7. AMOXICILLIN AND CLAVULA. POTASSIUM /02043401/ [Concomitant]
     Dosage: 1 D/F, DAILY (1/D)
  8. BACLOFEN [Concomitant]
     Indication: MULTIPLE SCLEROSIS
     Dosage: 20 MG, 4/D
  9. VITAMIN E [Concomitant]
     Dosage: UNK, DAILY (1/D)
  10. ASCORBIC ACID [Concomitant]
     Dosage: UNK, DAILY (1/D)
  11. FORTEO [Suspect]
     Indication: OSTEOPOROSIS
     Dosage: 20 UG, DAILY (1/D)
     Route: 065
  12. ASPIRIN [Concomitant]
     Dosage: 325 MG, DAILY (1/D)
  13. LESCOL XL [Concomitant]
     Dosage: 80 MG, EACH EVENING

REACTIONS (7)
  - DYSGRAPHIA [None]
  - DYSPNOEA [None]
  - PNEUMONIA [None]
  - CYSTITIS [None]
  - PARALYSIS [None]
  - ALTERED STATE OF CONSCIOUSNESS [None]
  - MALAISE [None]
